FAERS Safety Report 23282528 (Version 1)
Quarter: 2023Q4

REPORT INFORMATION
  Report Type: Spontaneous
  Country: US (occurrence: None)
  Receive Date: 20231208
  Receipt Date: 20231208
  Transmission Date: 20240110
  Serious: Yes (Life-Threatening, Disabling)
  Sender: FDA-Public Use
  Company Number: None

PATIENT
  Age: 25 Year
  Sex: Female
  Weight: 60.75 kg

DRUGS (4)
  1. YUTOPAR [Suspect]
     Active Substance: RITODRINE HYDROCHLORIDE
     Indication: Premature labour
     Dates: start: 19880701, end: 19880901
  2. DEPAKOTE [Concomitant]
     Active Substance: DIVALPROEX SODIUM
  3. PAXIL [Concomitant]
     Active Substance: PAROXETINE HYDROCHLORIDE
  4. ZYPREXA [Concomitant]
     Active Substance: OLANZAPINE

REACTIONS (2)
  - Emotional disorder [None]
  - Disability [None]

NARRATIVE: CASE EVENT DATE: 19880701
